FAERS Safety Report 24660443 (Version 1)
Quarter: 2024Q4

REPORT INFORMATION
  Report Type: Report from Study
  Country: CA (occurrence: CA)
  Receive Date: 20241125
  Receipt Date: 20241125
  Transmission Date: 20250115
  Serious: Yes (Other)
  Sender: FERRING
  Company Number: CA-FERRINGPH-2024FE06475

PATIENT

DRUGS (1)
  1. PROGESTERONE [Suspect]
     Active Substance: PROGESTERONE
     Route: 067

REACTIONS (4)
  - Product contamination microbial [Unknown]
  - Exposure via contaminated device [Unknown]
  - Application site nodule [Unknown]
  - Vaginal discharge [Unknown]
